FAERS Safety Report 6832087-0 (Version None)
Quarter: 2010Q3

REPORT INFORMATION
  Report Type: 
  Country: None (occurrence: None)
  Receive Date: 20100712
  Receipt Date: 20100702
  Transmission Date: 20110219
  Serious: Yes (Other)
  Sender: FDA-Public Use
  Company Number: US-ROCHE-713760

PATIENT
  Age: 64 Year
  Sex: Female
  Weight: 68 kg

DRUGS (5)
  1. VALIUM [Suspect]
     Indication: ARRHYTHMIA
     Dosage: OTHER INDICATION: ANXIETY
     Route: 048
  2. LYRICA [Suspect]
     Indication: FIBROMYALGIA
     Dosage: FORM: CAPSULE, HARD
     Route: 048
     Dates: start: 20091101, end: 20100617
  3. PERCOCET [Suspect]
     Indication: PAIN
     Route: 048
  4. VICODIN [Suspect]
     Indication: PAIN
     Route: 048
  5. PREDNISONE [Suspect]
     Indication: SWELLING
     Route: 065

REACTIONS (24)
  - ABDOMINAL DISCOMFORT [None]
  - AGITATION [None]
  - ANKLE FRACTURE [None]
  - BELLIGERENCE [None]
  - BLINDNESS [None]
  - CONFUSIONAL STATE [None]
  - DEPRESSION [None]
  - DIZZINESS [None]
  - FALL [None]
  - FEELING DRUNK [None]
  - HYPOPHAGIA [None]
  - HYPOVENTILATION [None]
  - IMPAIRED DRIVING ABILITY [None]
  - MICTURITION FREQUENCY DECREASED [None]
  - MUSCLE SPASMS [None]
  - MUSCULAR WEAKNESS [None]
  - OEDEMA PERIPHERAL [None]
  - PHYSICAL DISABILITY [None]
  - SOMNOLENCE [None]
  - SUICIDAL IDEATION [None]
  - TREMOR [None]
  - VISION BLURRED [None]
  - VOMITING [None]
  - WEIGHT INCREASED [None]
